FAERS Safety Report 6693209-8 (Version None)
Quarter: 2010Q2

REPORT INFORMATION
  Report Type: 
  Country: None (occurrence: None)
  Receive Date: 20100421
  Receipt Date: 20100421
  Transmission Date: 20101027
  Serious: No
  Sender: FDA-Public Use
  Company Number: None

PATIENT
  Age: 57 Year
  Sex: Female
  Weight: 74.8435 kg

DRUGS (2)
  1. BYSTOLIC [Suspect]
     Indication: HYPERTENSION
     Dosage: 1/3 OF 5 MG 1/DAY PO
     Route: 048
     Dates: start: 20090601, end: 20100401
  2. BYSTOLIC [Concomitant]

REACTIONS (7)
  - BLOOD PRESSURE DECREASED [None]
  - CREPITATIONS [None]
  - DYSKINESIA [None]
  - DYSSTASIA [None]
  - GAIT DISTURBANCE [None]
  - PAIN [None]
  - PARAESTHESIA [None]
